FAERS Safety Report 25059168 (Version 1)
Quarter: 2025Q1

REPORT INFORMATION
  Report Type: Report from Study
  Country: US (occurrence: US)
  Receive Date: 20250310
  Receipt Date: 20250310
  Transmission Date: 20250409
  Serious: Yes (Death, Hospitalization)
  Sender: UCB
  Company Number: US-UCBSA-2024055763

PATIENT
  Sex: Male

DRUGS (1)
  1. ROZANOLIXIZUMAB [Suspect]
     Active Substance: ROZANOLIXIZUMAB
     Indication: Product used for unknown indication
     Dates: start: 20240215, end: 20241009

REACTIONS (1)
  - Cerebrovascular accident [Fatal]
